FAERS Safety Report 5553002-6 (Version None)
Quarter: 2007Q4

REPORT INFORMATION
  Report Type: 
  Country: None (occurrence: None)
  Receive Date: 20071212
  Receipt Date: 20070703
  Transmission Date: 20080405
  Serious: No
  Sender: FDA-Public Use
  Company Number: US-AMGEN-KDL227711

PATIENT
  Sex: Female
  Weight: 74.9 kg

DRUGS (2)
  1. ENBREL [Suspect]
     Indication: RHEUMATOID ARTHRITIS
     Route: 058
     Dates: start: 20030101
  2. ADVIL LIQUI-GELS [Concomitant]

REACTIONS (7)
  - FATIGUE [None]
  - FUNGAL INFECTION [None]
  - INJECTION SITE PAIN [None]
  - INSOMNIA [None]
  - JOINT STIFFNESS [None]
  - MUSCULOSKELETAL STIFFNESS [None]
  - OVERDOSE [None]
